FAERS Safety Report 17351665 (Version 1)
Quarter: 2020Q1

REPORT INFORMATION
  Report Type: Spontaneous
  Country: US (occurrence: US)
  Receive Date: 20200130
  Receipt Date: 20200130
  Transmission Date: 20200409
  Serious: Yes (Hospitalization)
  Sender: FDA-Public Use
  Company Number: US-ALLERGAN-1950944US

PATIENT
  Sex: Male

DRUGS (5)
  1. LINZESS [Suspect]
     Active Substance: LINACLOTIDE
     Dosage: 72 ?G, QD
     Route: 048
     Dates: start: 20191207, end: 20191208
  2. RECTAL SUPPOSITORY [Concomitant]
     Indication: CONSTIPATION
  3. LINZESS [Suspect]
     Active Substance: LINACLOTIDE
     Dosage: 144 ?G, QD
     Route: 048
     Dates: start: 20191209
  4. IBGARD CAPSULES [Concomitant]
     Indication: IRRITABLE BOWEL SYNDROME
     Dosage: 2 AFTER MEALS IN AFTERNOON AND EVENING
     Route: 048
  5. LINZESS [Suspect]
     Active Substance: LINACLOTIDE
     Indication: IRRITABLE BOWEL SYNDROME
     Dosage: 72 ?G, QD
     Route: 048

REACTIONS (7)
  - Nephrolithiasis [Recovered/Resolved]
  - Incorrect dose administered [Unknown]
  - Abdominal distension [Not Recovered/Not Resolved]
  - Constipation [Not Recovered/Not Resolved]
  - Flatulence [Not Recovered/Not Resolved]
  - Muscle spasms [Not Recovered/Not Resolved]
  - Therapy cessation [Recovered/Resolved]

NARRATIVE: CASE EVENT DATE: 201912
